FAERS Safety Report 23287951 (Version 1)
Quarter: 2023Q4

REPORT INFORMATION
  Report Type: Spontaneous
  Country: US (occurrence: US)
  Receive Date: 20231212
  Receipt Date: 20231212
  Transmission Date: 20240109
  Serious: No
  Sender: FDA-Public Use
  Company Number: US-ELI_LILLY_AND_COMPANY-US202312006189

PATIENT
  Age: 78 Year
  Sex: Female

DRUGS (2)
  1. FORTEO [Suspect]
     Active Substance: TERIPARATIDE
     Indication: Osteoporosis
     Dosage: 20 UG, UNKNOWN
     Route: 058
     Dates: start: 20211201, end: 20231201
  2. FORTEO [Suspect]
     Active Substance: TERIPARATIDE
     Indication: Osteonecrosis of jaw

REACTIONS (4)
  - Bone density decreased [Unknown]
  - Back pain [Recovering/Resolving]
  - Bone pain [Recovering/Resolving]
  - Blood calcium increased [Recovered/Resolved]

NARRATIVE: CASE EVENT DATE: 20231210
